FAERS Safety Report 5975172-8 (Version None)
Quarter: 2008Q4

REPORT INFORMATION
  Report Type: 
  Country: None (occurrence: None)
  Receive Date: 20081202
  Receipt Date: 20080616
  Transmission Date: 20090506
  Serious: No
  Sender: FDA-Public Use
  Company Number: US-ABBOTT-08P-163-0457439-00

PATIENT
  Sex: Female
  Weight: 68.1 kg

DRUGS (1)
  1. LUPRON DEPOT [Suspect]
     Indication: VAGINAL HAEMORRHAGE
     Route: 030
     Dates: start: 20080508, end: 20080608

REACTIONS (5)
  - HEART RATE IRREGULAR [None]
  - HYPERSENSITIVITY [None]
  - PRURITUS [None]
  - RASH [None]
  - URTICARIA [None]
